FAERS Safety Report 4932861-1 (Version None)
Quarter: 2006Q1

REPORT INFORMATION
  Report Type: 
  Country: None (occurrence: None)
  Receive Date: 20060301
  Receipt Date: 20060301
  Transmission Date: 20060701
  Serious: Yes (Death, Life-Threatening)
  Sender: FDA-Public Use
  Company Number: None

PATIENT
  Sex: Female
  Weight: 94.3482 kg

DRUGS (1)
  1. ORTHO EVRA [Suspect]
     Indication: CONTRACEPTION
     Dosage: 1 PATCH 1 PATCH/WK TRANSDERMAL
     Route: 062
     Dates: start: 20020501, end: 20020630

REACTIONS (2)
  - ARTERIAL STENOSIS [None]
  - ARTERIOSCLEROSIS [None]
